FAERS Safety Report 6673817-0 (Version None)
Quarter: 2010Q2

REPORT INFORMATION
  Report Type: 
  Country: None (occurrence: None)
  Receive Date: 20100407
  Receipt Date: 20100330
  Transmission Date: 20101027
  Serious: No
  Sender: FDA-Public Use
  Company Number: 1000005496

PATIENT
  Age: 61 Year
  Sex: Female

DRUGS (2)
  1. THYROID TAB [Suspect]
     Indication: HYPOTHYROIDISM
     Dosage: 90 MG, ORAL
     Route: 048
     Dates: end: 20090101
  2. THYROID TAB [Suspect]
     Indication: HYPOTHYROIDISM
     Dosage: 120 MG (60 MG, 2 IN 1 D), ORAL
     Route: 048
     Dates: start: 20090101, end: 20100101

REACTIONS (11)
  - ATRIAL FIBRILLATION [None]
  - BLOOD THYROID STIMULATING HORMONE DECREASED [None]
  - DRUG INEFFECTIVE [None]
  - DRY SKIN [None]
  - EXOPHTHALMOS [None]
  - FATIGUE [None]
  - ONYCHOCLASIS [None]
  - PALPITATIONS [None]
  - PARATHYROID DISORDER [None]
  - PRODUCT SUBSTITUTION ISSUE [None]
  - SKIN ATROPHY [None]
